FAERS Safety Report 7468215-6 (Version None)
Quarter: 2011Q2

REPORT INFORMATION
  Report Type: 
  Country: None (occurrence: None)
  Receive Date: 20110509
  Receipt Date: 20100514
  Transmission Date: 20111010
  Serious: No
  Sender: FDA-Public Use
  Company Number: US-SANOFI-AVENTIS-2010SA020317

PATIENT
  Age: 63 Year
  Sex: Female

DRUGS (15)
  1. FISH OIL [Concomitant]
     Indication: CARDIOVASCULAR EVENT PROPHYLAXIS
     Route: 048
     Dates: start: 20090101
  2. APIDRA [Suspect]
     Indication: TYPE 2 DIABETES MELLITUS
     Dosage: TOOK 19 UNITS PRE-BREAKFAST, 18 UNITS PRE-LUNCH AND 26 UNITS PRE-DINNER DAILY.
     Route: 065
     Dates: start: 20100316
  3. VISINE EYE DROPS [Concomitant]
     Dates: start: 20090301
  4. FLUNISOLIDE [Concomitant]
     Indication: SINUS DISORDER
     Dosage: 2 SPRAYS EACH NOSTRIL DAILY
     Route: 045
     Dates: start: 20100322
  5. MULTI-VITAMINS [Concomitant]
     Dosage: 1 TAB DAILY
     Route: 048
     Dates: start: 20100310
  6. GENERAL NUTRIENTS [Concomitant]
     Indication: PROPHYLAXIS
     Route: 048
     Dates: start: 20090101
  7. ALAVERT [Concomitant]
     Route: 048
  8. SIMVASTATIN [Concomitant]
     Dosage: 1/2 TAB DAILY
     Route: 048
  9. ARTIFICIAL TEARS [Concomitant]
     Dates: start: 20100301
  10. ARTIFICIAL TEARS [Concomitant]
     Dates: start: 20100301
  11. CALTRATE +D [Concomitant]
     Dosage: 1 TAB AM/PM
     Route: 048
     Dates: start: 20090101
  12. VITAMIN B1 TAB [Concomitant]
     Dosage: 1 TAB AM/PM
     Route: 048
  13. CLONIDINE [Concomitant]
     Route: 048
  14. DIOVAN HCT [Concomitant]
     Dosage: 320MG/25MG1 TAB IN THE AM
     Route: 048
  15. ANTIHYPERTENSIVES [Concomitant]
     Route: 048

REACTIONS (5)
  - INJECTION SITE PAIN [None]
  - BLOOD GLUCOSE INCREASED [None]
  - ERYTHEMA [None]
  - INJECTION SITE HAEMATOMA [None]
  - FEELING HOT [None]
